FAERS Safety Report 8266940-0 (Version None)
Quarter: 2012Q2

REPORT INFORMATION
  Report Type: 
  Country: None (occurrence: None)
  Receive Date: 20120404
  Receipt Date: 20120404
  Transmission Date: 20120825
  Serious: Yes (Hospitalization)
  Sender: FDA-Public Use
  Company Number: None

PATIENT
  Age: 84 Year
  Sex: Male

DRUGS (25)
  1. ASPIRIN [Suspect]
     Indication: CEREBROVASCULAR ACCIDENT
     Dosage: 81MG DAILY PO  CHRONIC
     Route: 048
  2. K+ [Concomitant]
  3. EXELON [Concomitant]
  4. ANTIOXIDANT [Concomitant]
  5. VIT C [Concomitant]
  6. METOPROLOL TARTRATE [Concomitant]
  7. CHOLECALCIFEROL [Concomitant]
  8. CRESTOR [Concomitant]
  9. AGGRENOX [Suspect]
     Indication: CEREBROVASCULAR ACCIDENT
     Dosage: BID PO CHRONIC
     Route: 048
  10. ORAL CHELATION [Concomitant]
  11. METFORMIN HCL [Concomitant]
  12. ARICEPT [Concomitant]
  13. MIRALAX [Concomitant]
  14. METFORMIN HCL [Concomitant]
  15. VIT E [Concomitant]
  16. NASONEX [Concomitant]
  17. NAMENTA [Concomitant]
  18. CIALIS [Concomitant]
  19. M.V.I. [Concomitant]
  20. GLIMEPIRIDE [Concomitant]
  21. FAMOTIDINE [Concomitant]
  22. GLUCOSAMINE [Concomitant]
  23. HONEY BEE POLLEN/PROPOLIS [Concomitant]
  24. LASIX [Concomitant]
  25. DOXYCYCLINE [Concomitant]

REACTIONS (4)
  - HAEMORRHAGIC ANAEMIA [None]
  - GASTROINTESTINAL ARTERIOVENOUS MALFORMATION [None]
  - DIVERTICULUM INTESTINAL [None]
  - LOWER GASTROINTESTINAL HAEMORRHAGE [None]
